FAERS Safety Report 13936615 (Version 1)
Quarter: 2017Q3

REPORT INFORMATION
  Report Type: Spontaneous
  Country: US (occurrence: US)
  Receive Date: 20170905
  Receipt Date: 20170905
  Transmission Date: 20171127
  Serious: Yes (Other)
  Sender: FDA-Public Use
  Company Number: US-DRREDDYS-USA/USA/17/0092715

PATIENT
  Age: 18 Year
  Sex: Female

DRUGS (2)
  1. CAFFEINE. [Interacting]
     Active Substance: CAFFEINE
     Indication: PRODUCT USED FOR UNKNOWN INDICATION
     Route: 065
  2. FLUOXETINE [Suspect]
     Active Substance: FLUOXETINE HYDROCHLORIDE
     Indication: DEPRESSION
     Route: 065

REACTIONS (9)
  - Nervousness [Unknown]
  - Anxiety [Unknown]
  - Food interaction [Unknown]
  - Depression [Unknown]
  - Drug interaction [Unknown]
  - Insomnia [Unknown]
  - Feeling jittery [Unknown]
  - Agitation [Unknown]
  - Tachyphrenia [Unknown]
